FAERS Safety Report 14393394 (Version 1)
Quarter: 2018Q1

REPORT INFORMATION
  Report Type: Spontaneous
  Country: BR (occurrence: BR)
  Receive Date: 20180116
  Receipt Date: 20180116
  Transmission Date: 20180509
  Serious: Yes (Other)
  Sender: FDA-Public Use
  Company Number: PHHY2017BR195108

PATIENT
  Age: 6 Year
  Sex: Female
  Weight: 16 kg

DRUGS (5)
  1. DEPAKENE [Concomitant]
     Active Substance: VALPROIC ACID
     Indication: EPILEPSY
     Dosage: 2.5 ML, TID
     Route: 048
  2. NEULEPTIL [Concomitant]
     Active Substance: PERICIAZINE
     Indication: EPILEPSY
     Dosage: 10 GTT, QD
     Route: 048
  3. CLOBAZAM [Concomitant]
     Active Substance: CLOBAZAM
     Indication: EPILEPSY
     Dosage: 0.5 DF, TID
     Route: 048
  4. CILODEX [Suspect]
     Active Substance: CIPROFLOXACIN\DEXAMETHASONE
     Indication: HORDEOLUM
     Dosage: UNK UNK, Q6H
     Route: 047
     Dates: start: 20171222, end: 20180105
  5. TOPIRAMATE. [Concomitant]
     Active Substance: TOPIRAMATE
     Indication: EPILEPSY
     Dosage: 1 DF, TID
     Route: 048

REACTIONS (4)
  - Rash erythematous [Recovering/Resolving]
  - Mydriasis [Recovering/Resolving]
  - Seizure [Recovering/Resolving]
  - Pruritus generalised [Recovering/Resolving]

NARRATIVE: CASE EVENT DATE: 20171223
